FAERS Safety Report 21211970 (Version 1)
Quarter: 2022Q3

REPORT INFORMATION
  Report Type: Spontaneous
  Country: US (occurrence: None)
  Receive Date: 20220812
  Receipt Date: 20220812
  Transmission Date: 20221027
  Serious: Yes (Other)
  Sender: FDA-Public Use
  Company Number: None

PATIENT
  Age: 65 Year
  Sex: Female
  Weight: 53.1 kg

DRUGS (12)
  1. QULIPTA [Suspect]
     Active Substance: ATOGEPANT
     Indication: Migraine
     Dosage: FREQUENCY : DAILY;?
     Route: 048
     Dates: start: 20220629, end: 20220708
  2. QULIPTA [Suspect]
     Active Substance: ATOGEPANT
     Indication: Prophylaxis
  3. LORAZEPAM [Concomitant]
     Active Substance: LORAZEPAM
  4. ESTRADIOL [Concomitant]
     Active Substance: ESTRADIOL
  5. TYLENOL [Concomitant]
     Active Substance: ACETAMINOPHEN
  6. NEXIUM [Concomitant]
     Active Substance: ESOMEPRAZOLE MAGNESIUM
  7. MULTI-VITAMIN [Concomitant]
     Active Substance: .ALPHA.-TOCOPHEROL ACETATE, DL-\ASCORBIC ACID\CYANOCOBALAMIN\FLUORIDE ION\FOLIC ACID\NIACIN\PYRIDOXI
  8. mineral supplement [Concomitant]
  9. COENZYME Q10 [Concomitant]
     Active Substance: DIETARY SUPPLEMENT\UBIDECARENONE
  10. HERBALS\TURMERIC [Concomitant]
     Active Substance: HERBALS\TURMERIC
  11. LUTEIN [Concomitant]
     Active Substance: LUTEIN
  12. FLAXSEED [Concomitant]
     Active Substance: FLAX SEED

REACTIONS (6)
  - Anxiety [None]
  - Suicidal ideation [None]
  - Paranoia [None]
  - Gastritis [None]
  - Headache [None]
  - Spondylitis [None]

NARRATIVE: CASE EVENT DATE: 20220701
